FAERS Safety Report 25219191 (Version 1)
Quarter: 2025Q2

REPORT INFORMATION
  Report Type: Spontaneous
  Country: US (occurrence: US)
  Receive Date: 20250421
  Receipt Date: 20250421
  Transmission Date: 20250717
  Serious: Yes (Hospitalization, Other)
  Sender: APOTEX
  Company Number: US-APOTEX-2025AP004864

PATIENT
  Age: 32 Year
  Sex: Female
  Weight: 72 kg

DRUGS (1)
  1. ACETAMINOPHEN [Suspect]
     Active Substance: ACETAMINOPHEN
     Indication: Product used for unknown indication
     Dosage: 62 MILLIGRAM/KILOGRAM, QD
     Route: 065

REACTIONS (10)
  - Acute hepatic failure [Recovering/Resolving]
  - Brain oedema [Recovering/Resolving]
  - Respiratory failure [Recovering/Resolving]
  - Shock [Recovering/Resolving]
  - Acute kidney injury [Recovering/Resolving]
  - Atrial fibrillation [Recovering/Resolving]
  - Gastrointestinal haemorrhage [Recovering/Resolving]
  - Thrombocytopenia [Recovering/Resolving]
  - Drug level increased [Recovering/Resolving]
  - Coagulopathy [Recovering/Resolving]
